FAERS Safety Report 17068900 (Version 1)
Quarter: 2019Q4

REPORT INFORMATION
  Report Type: Spontaneous
  Country: US (occurrence: US)
  Receive Date: 20191024
  Receipt Date: 20191024
  Transmission Date: 20200122
  Serious: No
  Sender: FDA-Public Use
  Company Number: None

PATIENT

DRUGS (2)
  1. GENERIC LOTREL [AMLODIPINE BESYLATE\BENAZEPRIL HYDROCHLORIDE] [Suspect]
     Active Substance: AMLODIPINE BESYLATE\BENAZEPRIL HYDROCHLORIDE
  2. GENERIC AGGRENOX [Suspect]
     Active Substance: ASPIRIN\DIPYRIDAMOLE

REACTIONS (1)
  - Product appearance confusion [None]
